FAERS Safety Report 10371975 (Version 2)
Quarter: 2014Q3

REPORT INFORMATION
  Report Type: Spontaneous
  Country: US (occurrence: US)
  Receive Date: 20140808
  Receipt Date: 20140912
  Transmission Date: 20150326
  Serious: Yes (Hospitalization)
  Sender: FDA-Public Use
  Company Number: US-BAYER-2014-116551

PATIENT
  Age: 26 Year
  Sex: Female
  Weight: 61.22 kg

DRUGS (1)
  1. MIRENA [Suspect]
     Active Substance: LEVONORGESTREL
     Indication: CONTRACEPTION
     Dosage: 20 MCG/24HR, CONT
     Route: 015
     Dates: start: 20101021, end: 20121114

REACTIONS (13)
  - Off label use [None]
  - Dyspareunia [None]
  - Abdominal pain [None]
  - Depression [Not Recovered/Not Resolved]
  - Infertility female [None]
  - Injury [None]
  - Self esteem decreased [Not Recovered/Not Resolved]
  - Uterine perforation [None]
  - Pollakiuria [None]
  - Emotional distress [None]
  - Uterine scar [None]
  - Vulvovaginal discomfort [None]
  - Anxiety [Not Recovered/Not Resolved]

NARRATIVE: CASE EVENT DATE: 20101021
